FAERS Safety Report 13747613 (Version 1)
Quarter: 2017Q3

REPORT INFORMATION
  Report Type: Report from Study
  Country: US (occurrence: US)
  Receive Date: 20170712
  Receipt Date: 20170712
  Transmission Date: 20171127
  Serious: Yes (Hospitalization)
  Sender: FDA-Public Use
  Company Number: US-VIFOR (INTERNATIONAL) INC.-VIT-2017-07503

PATIENT
  Age: 68 Year
  Sex: Female

DRUGS (21)
  1. VELTASSA [Suspect]
     Active Substance: PATIROMER
     Indication: HYPERKALAEMIA
     Route: 048
     Dates: start: 20160930, end: 2017
  2. PANTOPRAZOLE [Concomitant]
     Active Substance: PANTOPRAZOLE
  3. AMOXICILLIN. [Concomitant]
     Active Substance: AMOXICILLIN
  4. AMLODIPINE [Concomitant]
     Active Substance: AMLODIPINE BESYLATE
  5. PRAVASTATIN. [Concomitant]
     Active Substance: PRAVASTATIN
  6. BUMETANIDE. [Concomitant]
     Active Substance: BUMETANIDE
  7. SUCRALFATE. [Concomitant]
     Active Substance: SUCRALFATE
  8. DOXYCYCLINE. [Concomitant]
     Active Substance: DOXYCYCLINE
  9. PARACETAMOL/OXYCODENE [Concomitant]
  10. CEFALEXIN [Concomitant]
     Active Substance: CEPHALEXIN
  11. METHYLPRED [Concomitant]
     Active Substance: METHYLPREDNISOLONE
  12. COLCHICINE. [Concomitant]
     Active Substance: COLCHICINE
  13. DOXAZOSIN [Concomitant]
     Active Substance: DOXAZOSIN\DOXAZOSIN MESYLATE
  14. TACROLIMUS. [Concomitant]
     Active Substance: TACROLIMUS
  15. BENZONATATE. [Concomitant]
     Active Substance: BENZONATATE
  16. LOSARTAN. [Concomitant]
     Active Substance: LOSARTAN
  17. LEVEMIR [Concomitant]
     Active Substance: INSULIN DETEMIR
  18. LEVOTHYROXINE. [Concomitant]
     Active Substance: LEVOTHYROXINE
  19. ERGOCALCIFEROL. [Concomitant]
     Active Substance: ERGOCALCIFEROL
  20. HYDROXYZINE [Concomitant]
     Active Substance: HYDROXYZINE HYDROCHLORIDE
  21. CLONIDINE. [Concomitant]
     Active Substance: CLONIDINE

REACTIONS (3)
  - Surgery [Unknown]
  - Eye disorder [Unknown]
  - Unevaluable event [Unknown]

NARRATIVE: CASE EVENT DATE: 20170623
